FAERS Safety Report 15387369 (Version 2)
Quarter: 2018Q3

REPORT INFORMATION
  Report Type: Spontaneous
  Country: IT (occurrence: IT)
  Receive Date: 20180914
  Receipt Date: 20180921
  Transmission Date: 20181010
  Serious: Yes (Hospitalization)
  Sender: FDA-Public Use
  Company Number: IT-SA-2018SA167826

PATIENT
  Age: 45 Year
  Sex: Female

DRUGS (1)
  1. AUBAGIO [Suspect]
     Active Substance: TERIFLUNOMIDE
     Indication: MULTIPLE SCLEROSIS
     Dosage: 1 DF, QD
     Route: 048
     Dates: start: 201802

REACTIONS (6)
  - Genital disorder female [Unknown]
  - Fluid retention [Recovered/Resolved]
  - Nosocomial infection [Recovered/Resolved]
  - Hyperpyrexia [Recovered/Resolved]
  - Uterine leiomyoma [Recovered/Resolved]
  - Elective surgery [Recovered/Resolved]

NARRATIVE: CASE EVENT DATE: 2018
